FAERS Safety Report 4611999-2 (Version None)
Quarter: 2005Q1

REPORT INFORMATION
  Report Type: 
  Country: None (occurrence: None)
  Receive Date: 20050317
  Receipt Date: 20050111
  Transmission Date: 20050727
  Serious: Yes (Hospitalization, Disabling)
  Sender: FDA-Public Use
  Company Number: US-MERCK-0501USA01009

PATIENT
  Age: 58 Year
  Sex: Female
  Weight: 110 kg

DRUGS (8)
  1. VIOXX [Suspect]
     Indication: TENDONITIS
     Route: 048
     Dates: start: 20020118, end: 20040930
  2. VIOXX [Suspect]
     Indication: CARPAL TUNNEL SYNDROME
     Route: 048
     Dates: start: 20020118, end: 20040930
  3. TOPAMAX [Concomitant]
     Route: 065
  4. DITROPAN [Concomitant]
     Route: 065
  5. LOTENSIN [Concomitant]
     Route: 065
  6. ACTIVELLA [Concomitant]
     Route: 065
  7. CHLORPHENIRAMINE MALEATE AND PSEUDOEPHEDRINE HCL [Concomitant]
     Route: 065
  8. [THERAPY UNSPECIFIED] [Concomitant]
     Route: 065

REACTIONS (6)
  - DYSARTHRIA [None]
  - INCOHERENT [None]
  - MENTAL DISORDER [None]
  - MOOD SWINGS [None]
  - PANIC ATTACK [None]
  - WEIGHT DECREASED [None]
